FAERS Safety Report 14937847 (Version 1)
Quarter: 2018Q2

REPORT INFORMATION
  Report Type: Spontaneous
  Country: IT (occurrence: IT)
  Receive Date: 20180525
  Receipt Date: 20180525
  Transmission Date: 20180711
  Serious: Yes (Hospitalization)
  Sender: FDA-Public Use
  Company Number: IT-ROCHE-2129723

PATIENT
  Age: 6 Year
  Sex: Male
  Weight: 25 kg

DRUGS (2)
  1. KEPPRA [Suspect]
     Active Substance: LEVETIRACETAM
     Indication: EPILEPSY
     Route: 048
     Dates: start: 20180430, end: 20180508
  2. RIVOTRIL [Suspect]
     Active Substance: CLONAZEPAM
     Indication: EPILEPSY
     Dosage: UNIT DOSE: 15 [DRP]?STRENGTH: 2.5 MG/ML
     Route: 048
     Dates: start: 20180430, end: 20180508

REACTIONS (5)
  - Eyelid ptosis [Unknown]
  - Seizure [Unknown]
  - Ataxia [Unknown]
  - Eye movement disorder [Unknown]
  - Drug ineffective [Unknown]

NARRATIVE: CASE EVENT DATE: 20180508
